FAERS Safety Report 7992222-8 (Version None)
Quarter: 2011Q4

REPORT INFORMATION
  Report Type: 
  Country: None (occurrence: None)
  Receive Date: 20111219
  Receipt Date: 20111208
  Transmission Date: 20120403
  Serious: Yes (Other)
  Sender: FDA-Public Use
  Company Number: CA-ELI_LILLY_AND_COMPANY-CA201111002405

PATIENT
  Age: 73 Year
  Sex: Female
  Weight: 88 kg

DRUGS (1)
  1. CYMBALTA [Suspect]
     Indication: DEPRESSION
     Dosage: 60 MG, QD
     Route: 048
     Dates: start: 20080205, end: 20110410

REACTIONS (2)
  - AUTOIMMUNE THROMBOCYTOPENIA [None]
  - UPPER RESPIRATORY TRACT INFECTION [None]
